FAERS Safety Report 4602402-7 (Version None)
Quarter: 2005Q1

REPORT INFORMATION
  Report Type: 
  Country: None (occurrence: None)
  Receive Date: 20050309
  Receipt Date: 20050127
  Transmission Date: 20050727
  Serious: Yes (Death, Life-Threatening)
  Sender: FDA-Public Use
  Company Number: 200510354JP

PATIENT
  Age: 74 Year
  Sex: Male
  Weight: 38.6 kg

DRUGS (4)
  1. TAXOTERE [Suspect]
     Indication: HYPOPHARYNGEAL CANCER
     Route: 041
     Dates: start: 20041207, end: 20041207
  2. RANDA [Suspect]
     Indication: HYPOPHARYNGEAL CANCER
     Route: 042
     Dates: start: 20041207, end: 20041207
  3. FLUOROURACIL [Suspect]
     Indication: HYPOPHARYNGEAL CANCER
     Route: 042
     Dates: start: 20041208, end: 20041211
  4. RADIOTHERAPY [Suspect]
     Dates: start: 20041206, end: 20041210

REACTIONS (4)
  - BONE MARROW DEPRESSION [None]
  - DISSEMINATED INTRAVASCULAR COAGULATION [None]
  - PNEUMONIA [None]
  - RESPIRATORY FAILURE [None]
